FAERS Safety Report 5945429-5 (Version None)
Quarter: 2008Q4

REPORT INFORMATION
  Report Type: 
  Country: None (occurrence: None)
  Receive Date: 20081107
  Receipt Date: 20081001
  Transmission Date: 20090506
  Serious: Yes (Life-Threatening, Hospitalization, Other)
  Sender: FDA-Public Use
  Company Number: NO-PFIZER INC-2008083591

PATIENT
  Sex: Male

DRUGS (4)
  1. LYRICA [Suspect]
     Indication: ANXIETY
     Route: 048
  2. ALCOHOL [Suspect]
  3. BENZODIAZEPINE DERIVATIVES [Suspect]
  4. ALL OTHER THERAPEUTIC PRODUCTS [Concomitant]

REACTIONS (8)
  - ABNORMAL BEHAVIOUR [None]
  - COORDINATION ABNORMAL [None]
  - DYSARTHRIA [None]
  - EUPHORIC MOOD [None]
  - IMPULSE-CONTROL DISORDER [None]
  - MANIA [None]
  - SEDATION [None]
  - SUICIDE ATTEMPT [None]
